FAERS Safety Report 10034533 (Version 1)
Quarter: 2014Q1

REPORT INFORMATION
  Report Type: Spontaneous
  Country: US (occurrence: None)
  Receive Date: 20140321
  Receipt Date: 20140321
  Transmission Date: 20141002
  Serious: Yes (Hospitalization)
  Sender: FDA-Public Use
  Company Number: 2014-04103

PATIENT
  Age: 47 Year
  Sex: Female

DRUGS (2)
  1. TRELSTAR (WATSON LABORATORIES) (TRIPTORELIN PAMOATE) INJECTABLE SUSPENSION, 3.75MG [Suspect]
     Indication: BREAST CANCER
     Dosage: 1 DF, ONCE A MONTH, INTRAMUSCULAR
     Route: 030
     Dates: start: 20110408, end: 20121207
  2. EXEMESTANE (ACTAVIS) (EXEMESTANE 25MG) TABLET, 25MG [Suspect]
     Indication: BREAST CANCER
     Route: 048
     Dates: start: 20110808, end: 20121231

REACTIONS (1)
  - Hyperglycaemia [None]
